FAERS Safety Report 5639997-0 (Version None)
Quarter: 2008Q1

REPORT INFORMATION
  Report Type: 
  Country: None (occurrence: None)
  Receive Date: 20080227
  Receipt Date: 20080204
  Transmission Date: 20080703
  Serious: No
  Sender: FDA-Public Use
  Company Number: US-BAYER-200813440NA

PATIENT
  Age: 39 Year
  Sex: Female
  Weight: 75 kg

DRUGS (2)
  1. YAZ [Suspect]
     Indication: CONTRACEPTION
     Route: 048
     Dates: start: 20080125
  2. NAPROSYN [Concomitant]
     Indication: BREAST PAIN
     Route: 048
     Dates: start: 20080128

REACTIONS (1)
  - VAGINAL HAEMORRHAGE [None]
